FAERS Safety Report 18558875 (Version 1)
Quarter: 2020Q4

REPORT INFORMATION
  Report Type: Spontaneous
  Country: US (occurrence: US)
  Receive Date: 20201125
  Receipt Date: 20201125
  Transmission Date: 20210114
  Serious: Yes (Other)
  Sender: FDA-Public Use
  Company Number: None

PATIENT
  Age: 85 Year
  Sex: Female
  Weight: 75.6 kg

DRUGS (13)
  1. SENNA 8.6MG, ORAL [Concomitant]
  2. PANTOPRAZOLE SODIUM 40MG, ORAL [Concomitant]
  3. VITAMIN B12 1000MCG, ORAL [Concomitant]
  4. PROMACTA [Suspect]
     Active Substance: ELTROMBOPAG OLAMINE
     Indication: IMMUNE THROMBOCYTOPENIA
     Route: 048
     Dates: start: 20200317, end: 20201125
  5. ASPIRIN EC LOW DOSE 81MG, ORAL [Concomitant]
  6. LISINOPRIL 5MG, ORAL [Concomitant]
  7. TIMOLOL MALEATE 0.5%, OPTHALMIC [Concomitant]
  8. SPIRIVA HANDIHALER 18MCG, ORAL [Concomitant]
  9. COREG 12.5MG, ORAL [Concomitant]
  10. ANASTROZOLE 1MG, ORAL [Concomitant]
  11. ALBUTEROL SULFATE 0.63MG/3ML, ORAL [Concomitant]
  12. FERROUS SULFATE IRON 65MG, ORAL [Concomitant]
  13. FLUOXETINE HCL 60MG, ORAL [Concomitant]

REACTIONS (2)
  - Hospice care [None]
  - Therapy cessation [None]

NARRATIVE: CASE EVENT DATE: 20201125
